FAERS Safety Report 8910048 (Version 3)
Quarter: 2013Q2

REPORT INFORMATION
  Report Type: Spontaneous
  Country: JP (occurrence: JP)
  Receive Date: 20121115
  Receipt Date: 20130522
  Transmission Date: 20140414
  Serious: Yes (Death, Life-Threatening, Hospitalization, Other)
  Sender: FDA-Public Use
  Company Number: JP-ABBOTT-12P-087-0933920-00

PATIENT
  Age: 60 Year
  Sex: Male
  Weight: 53 kg

DRUGS (11)
  1. HUMIRA 40 MG/ 0.8 ML PRE-FILLED SYRINGE [Suspect]
     Indication: CROHN^S DISEASE
     Route: 058
     Dates: start: 20111116, end: 20111116
  2. HUMIRA 40 MG/ 0.8 ML PRE-FILLED SYRINGE [Suspect]
     Route: 058
  3. HUMIRA 40 MG/ 0.8 ML PRE-FILLED SYRINGE [Suspect]
     Route: 058
     Dates: start: 20111116, end: 20120502
  4. HUMIRA 40 MG/ 0.8 ML PRE-FILLED SYRINGE [Suspect]
     Route: 058
     Dates: start: 20120520, end: 20121003
  5. BISOPROLOL FUMARATE [Concomitant]
     Indication: VENTRICULAR EXTRASYSTOLES
  6. FAMOTIDINE [Concomitant]
     Indication: GASTRITIS
     Route: 048
  7. MEXILETINE HYDROCHLORIDE [Concomitant]
     Indication: TACHYARRHYTHMIA
     Route: 048
  8. MINODRONIC ACID HYDRATE [Concomitant]
     Indication: OSTEOPOROSIS
     Route: 048
     Dates: start: 20120118
  9. PREDNISOLONE [Concomitant]
     Indication: CROHN^S DISEASE
     Route: 048
  10. CARBAMAZEPINE [Concomitant]
     Indication: EPILEPSY
     Route: 048
     Dates: start: 20110916
  11. PARENTERAL NUTRITION [Concomitant]
     Indication: CROHN^S DISEASE
     Route: 048

REACTIONS (13)
  - Cardiomyopathy [Unknown]
  - Cardiac failure [Fatal]
  - White blood cell count decreased [Recovering/Resolving]
  - Malabsorption [Unknown]
  - Red blood cell count decreased [Recovering/Resolving]
  - Platelet count decreased [Not Recovered/Not Resolved]
  - Pancytopenia [Recovering/Resolving]
  - Antiphospholipid syndrome [Unknown]
  - Bone marrow failure [Unknown]
  - Fluid retention [Unknown]
  - Crohn^s disease [Recovered/Resolved]
  - Aplastic anaemia [Recovering/Resolving]
  - Drug hypersensitivity [Unknown]
